FAERS Safety Report 22187352 (Version 3)
Quarter: 2023Q4

REPORT INFORMATION
  Report Type: Spontaneous
  Country: HR (occurrence: HR)
  Receive Date: 20230407
  Receipt Date: 20231201
  Transmission Date: 20240110
  Serious: Yes (Hospitalization, Other)
  Sender: FDA-Public Use
  Company Number: HR-009507513-2303HRV010284

PATIENT
  Age: 66 Year
  Sex: Male

DRUGS (16)
  1. KEYTRUDA [Suspect]
     Active Substance: PEMBROLIZUMAB
     Indication: Lung adenocarcinoma
     Dosage: 200 MG IV
     Route: 042
     Dates: start: 20220829, end: 20220829
  2. KEYTRUDA [Suspect]
     Active Substance: PEMBROLIZUMAB
     Dosage: 200 MG IV
     Route: 042
     Dates: start: 20220919, end: 20220919
  3. KEYTRUDA [Suspect]
     Active Substance: PEMBROLIZUMAB
     Dosage: 200 MG IV
     Route: 042
     Dates: start: 20221010, end: 20221010
  4. KEYTRUDA [Suspect]
     Active Substance: PEMBROLIZUMAB
     Dosage: 200 MG IV
     Route: 042
     Dates: start: 20230103, end: 20230103
  5. KEYTRUDA [Suspect]
     Active Substance: PEMBROLIZUMAB
     Dosage: 200 MG IV
     Route: 042
     Dates: start: 2023, end: 2023
  6. KEYTRUDA [Suspect]
     Active Substance: PEMBROLIZUMAB
     Dosage: 200 MG IV
     Route: 042
     Dates: start: 20230323, end: 20230323
  7. KEYTRUDA [Suspect]
     Active Substance: PEMBROLIZUMAB
     Dosage: 200 MG IV
     Route: 042
     Dates: start: 20230909, end: 20230909
  8. KEYTRUDA [Suspect]
     Active Substance: PEMBROLIZUMAB
     Dosage: 200 MG IV
     Route: 042
     Dates: start: 20231030, end: 20231030
  9. KEYTRUDA [Suspect]
     Active Substance: PEMBROLIZUMAB
     Dosage: 200 MG IV
     Route: 042
     Dates: start: 20231120, end: 20231120
  10. RAMIPRIL [Concomitant]
     Active Substance: RAMIPRIL
     Dosage: 2.5 MG 1X1 TBL
  11. NORMABEL [Concomitant]
     Active Substance: DIAZEPAM
     Dosage: PER NEED
  12. ATORVASTATIN [Concomitant]
     Active Substance: ATORVASTATIN
     Dosage: 1X1
  13. DEXKETOPROFEN\TRAMADOL [Concomitant]
     Active Substance: DEXKETOPROFEN\TRAMADOL
     Dosage: 2X1
     Dates: start: 20220829, end: 2022
  14. BUPRENORPHINE [Concomitant]
     Active Substance: BUPRENORPHINE
     Dosage: PATCH A 70 MCG
     Dates: start: 20220829, end: 2022
  15. IBUPROFEN [Concomitant]
     Active Substance: IBUPROFEN
     Indication: Pain
     Dosage: 600 MG 2X1 TABLET
     Route: 048
  16. TRAMADOL [Concomitant]
     Active Substance: TRAMADOL\TRAMADOL HYDROCHLORIDE
     Dosage: 100 MG AS NEEDED UP TO 2X1 TBL

REACTIONS (12)
  - Malignant neoplasm progression [Unknown]
  - Pleural thickening [Unknown]
  - Imaging procedure artifact [Unknown]
  - Diarrhoea [Unknown]
  - Cholecystectomy [Unknown]
  - Lymphadenopathy [Unknown]
  - Adrenomegaly [Unknown]
  - Bronchial wall thickening [Unknown]
  - General physical health deterioration [Unknown]
  - Diarrhoea [Unknown]
  - COVID-19 [Unknown]
  - Bronchial dysplasia [Unknown]

NARRATIVE: CASE EVENT DATE: 20220101
